FAERS Safety Report 6312489-1 (Version None)
Quarter: 2009Q3

REPORT INFORMATION
  Report Type: 
  Country: None (occurrence: None)
  Receive Date: 20090813
  Receipt Date: 20090730
  Transmission Date: 20100115
  Serious: Yes (Hospitalization, Other)
  Sender: FDA-Public Use
  Company Number: JPI-P-008093

PATIENT
  Age: 57 Year
  Sex: Female
  Weight: 89.8122 kg

DRUGS (9)
  1. XYREM [Suspect]
     Indication: FIBROMYALGIA
     Dosage: SEE IMAGE
     Route: 048
     Dates: start: 20090501, end: 20090728
  2. XYREM [Suspect]
     Indication: FIBROMYALGIA
     Dosage: SEE IMAGE
     Route: 048
     Dates: start: 20070124
  3. XYREM [Suspect]
     Indication: FIBROMYALGIA
     Dosage: SEE IMAGE
     Route: 048
     Dates: start: 20090101
  4. XYREM [Suspect]
     Indication: FIBROMYALGIA
     Dosage: SEE IMAGE
     Route: 048
     Dates: start: 20090729
  5. ESCITALOPRAM OXALATE [Concomitant]
  6. FENTANYL (POULTICE OR PATCH) [Concomitant]
  7. PROPOXYPHENE NAPSYLATE W/ ACETAMINOPHEN [Concomitant]
  8. DIAZEPAM [Concomitant]
  9. LEVOTHYROXINE [Concomitant]

REACTIONS (12)
  - BLINDNESS UNILATERAL [None]
  - FALL [None]
  - HEAD INJURY [None]
  - INCORRECT DOSE ADMINISTERED [None]
  - MIGRAINE [None]
  - MYODESOPSIA [None]
  - OEDEMA PERIPHERAL [None]
  - PULMONARY THROMBOSIS [None]
  - RETINAL TEAR [None]
  - TERMINAL INSOMNIA [None]
  - THROMBOSIS [None]
  - WEIGHT INCREASED [None]
